FAERS Safety Report 6555157-3 (Version None)
Quarter: 2010Q1

REPORT INFORMATION
  Report Type: 
  Country: None (occurrence: None)
  Receive Date: 20100126
  Receipt Date: 20100126
  Transmission Date: 20100710
  Serious: Yes (Congenital Anomaly)
  Sender: FDA-Public Use
  Company Number: None

PATIENT
  Sex: Male
  Weight: 81.6475 kg

DRUGS (2)
  1. ANDRODERM [Suspect]
     Indication: BLOOD TESTOSTERONE DECREASED
     Dosage: 2.5 MG DAILY PATCH
     Route: 062
     Dates: start: 20080101
  2. SAME [Suspect]
     Dosage: 2.5 MG DAILY PATCH
     Dates: start: 20080101

REACTIONS (1)
  - ERYTHEMA [None]
